FAERS Safety Report 8603678-1 (Version None)
Quarter: 2012Q3

REPORT INFORMATION
  Report Type: 
  Country: None (occurrence: None)
  Receive Date: 20120817
  Receipt Date: 20120806
  Transmission Date: 20120928
  Serious: No
  Sender: FDA-Public Use
  Company Number: US-ASTRAZENECA-2012SE55362

PATIENT
  Age: 55 Year
  Sex: Female
  Weight: 81.6 kg

DRUGS (6)
  1. NEXIUM [Suspect]
     Indication: GASTROOESOPHAGEAL REFLUX DISEASE
     Route: 048
     Dates: start: 20070101
  2. LORTAB [Concomitant]
     Indication: LEG AMPUTATION
  3. NEXIUM [Suspect]
     Route: 048
     Dates: start: 20070101
  4. CLONAZEPAM [Concomitant]
     Indication: ANXIETY
  5. LISINOPRIL [Concomitant]
     Indication: HYPERTENSION
  6. CYMBALTA [Concomitant]
     Indication: DEPRESSION

REACTIONS (4)
  - CHOLELITHIASIS [None]
  - DEPRESSION [None]
  - ARTHRITIS [None]
  - OFF LABEL USE [None]
